FAERS Safety Report 9316181 (Version 1)
Quarter: 2013Q2

REPORT INFORMATION
  Report Type: Spontaneous
  Country: US (occurrence: None)
  Receive Date: 20130528
  Receipt Date: 20130528
  Transmission Date: 20140414
  Serious: Yes (Life-Threatening, Hospitalization)
  Sender: FDA-Public Use
  Company Number: None

PATIENT
  Age: 82 Year
  Sex: 0

DRUGS (51)
  1. BORTEZOMIB [Suspect]
     Indication: ACUTE MYELOID LEUKAEMIA
     Dosage: SQ 1.5 MG/M2 D 1, 4, 8, 11
     Route: 058
     Dates: start: 20130517, end: 20130521
  2. DOXORUBICIN [Suspect]
     Indication: ACUTE MYELOID LEUKAEMIA
     Dosage: IV 40 MG/M2 D4
     Dates: start: 20130521
  3. TYLENOL [Concomitant]
  4. ACYCLOVIR [Concomitant]
  5. ALLOPURINOL [Concomitant]
  6. CATHFLO [Concomitant]
  7. ACTIVASE [Concomitant]
  8. BUMETANIDE [Concomitant]
  9. CALCIUM CARBONATE [Concomitant]
  10. CALCIUM GLUCONADE [Concomitant]
  11. CHLORHEXIDINE [Concomitant]
  12. APRESOLINE [Concomitant]
  13. HYDROCODONE [Concomitant]
  14. INSULIN [Concomitant]
  15. ATROVENT [Concomitant]
  16. DUO-NEB [Concomitant]
  17. ATIVAN [Concomitant]
  18. TAMIFLU [Concomitant]
  19. OXYCODONE [Concomitant]
  20. CHLORASEPTIC [Concomitant]
  21. POTASSIUM [Concomitant]
  22. CHLORIDE [Concomitant]
  23. VANCOMYCIN [Concomitant]
  24. VFEND [Concomitant]
  25. PHENYLEPHRINE [Concomitant]
  26. PROPOFOL [Concomitant]
  27. ZEMURON [Concomitant]
  28. DILTIAZEM [Concomitant]
  29. BENADRYL [Concomitant]
  30. EPINEPHRINE [Concomitant]
  31. NEXIUM [Concomitant]
  32. AMIDATE [Concomitant]
  33. PEPCID [Concomitant]
  34. FENTANYL [Concomitant]
  35. LASIX [Concomitant]
  36. GLUCAGON [Concomitant]
  37. MG OXIDATE [Concomitant]
  38. MG SULFATE [Concomitant]
  39. MERREM [Concomitant]
  40. METOPROLOL [Concomitant]
  41. ZOFRAN [Concomitant]
  42. PREDISONE [Concomitant]
  43. COMPAZIE [Concomitant]
  44. DIPRIVAN [Concomitant]
  45. CEFEPIME [Concomitant]
  46. LIDOCAINE-TOPICAL [Concomitant]
  47. VERSED [Concomitant]
  48. PROTONIX [Concomitant]
  49. NEBCIN [Concomitant]
  50. TRIMETROPIM [Concomitant]
  51. BACTRUM [Concomitant]

REACTIONS (4)
  - Hypoxia [None]
  - Tachycardia [None]
  - Lung infiltration [None]
  - Dyspnoea [None]
